FAERS Safety Report 10984319 (Version 1)
Quarter: 2015Q2

REPORT INFORMATION
  Report Type: Spontaneous
  Country: US (occurrence: US)
  Receive Date: 20150403
  Receipt Date: 20150403
  Transmission Date: 20150821
  Serious: Yes (Other)
  Sender: FDA-Public Use
  Company Number: US-ELI_LILLY_AND_COMPANY-US201503009232

PATIENT
  Sex: Female

DRUGS (2)
  1. EMEDUR                             /00077701/ [Concomitant]
     Dosage: 120 MG, QD
  2. EFFIENT [Suspect]
     Active Substance: PRASUGREL HYDROCHLORIDE
     Indication: STENT PLACEMENT
     Dosage: 5 MG, QD
     Dates: start: 201412

REACTIONS (7)
  - Coronary artery occlusion [Unknown]
  - Peripheral vascular disorder [Unknown]
  - Contusion [Unknown]
  - Haemoptysis [Unknown]
  - Sinus disorder [Unknown]
  - Angina pectoris [Unknown]
  - Cough [Unknown]
